FAERS Safety Report 18735980 (Version 3)
Quarter: 2021Q1

REPORT INFORMATION
  Report Type: Report from Study
  Country: DE (occurrence: DE)
  Receive Date: 20210113
  Receipt Date: 20210129
  Transmission Date: 20210419
  Serious: Yes (Hospitalization)
  Sender: FDA-Public Use
  Company Number: DE-AMGEN-DEUCT2021003374

PATIENT
  Age: 66 Year
  Sex: Female
  Weight: 68 kg

DRUGS (12)
  1. CLEXANE [Concomitant]
     Active Substance: ENOXAPARIN SODIUM
     Indication: THROMBOSIS PROPHYLAXIS
     Dosage: 40 MILLIGRAM, BID
     Route: 058
     Dates: start: 20200512, end: 20210107
  2. MAGNESIUM VERLA [MAGNESIUM] [Concomitant]
     Indication: HYPOMAGNESAEMIA
     Dosage: 1 TABLET, QD
     Route: 048
     Dates: start: 20200609
  3. LENALIDOMIDE [Suspect]
     Active Substance: LENALIDOMIDE
     Indication: PLASMA CELL MYELOMA
     Dosage: 5 MILLIGRAM, PER CHEMO REGIM
     Route: 048
     Dates: start: 20181129
  4. NEUPOGEN [Concomitant]
     Active Substance: FILGRASTIM
     Indication: BLOOD STEM CELL HARVEST
     Dosage: 480 MICROGRAM, QD
     Route: 058
     Dates: start: 20190308, end: 20190313
  5. CYCLOPHOSPHAMID [Concomitant]
     Active Substance: CYCLOPHOSPHAMIDE
     Indication: HAEMATOPOIETIC STEM CELL MOBILISATION
     Dosage: 8055 MILLIGRAM, QD
     Route: 042
     Dates: start: 20190308, end: 20190308
  6. LENALIDOMIDE [Suspect]
     Active Substance: LENALIDOMIDE
     Dosage: UNK UNK, PER CHEMO REGIM
     Route: 048
     Dates: start: 20210126
  7. ELOTUZUMAB. [Suspect]
     Active Substance: ELOTUZUMAB
     Indication: PLASMA CELL MYELOMA
     Dosage: 690 MILLIGRAM, PER CHEMO REGIM
     Route: 042
     Dates: start: 20181129, end: 20201201
  8. DEXAMETHASONE. [Suspect]
     Active Substance: DEXAMETHASONE
     Indication: PLASMA CELL MYELOMA
     Dosage: 20 MILLIGRAM, PER CHEMO REGIM
     Route: 048
     Dates: start: 20181129, end: 20200219
  9. COTRIM FORTE [Concomitant]
     Active Substance: SULFAMETHOXAZOLE\TRIMETHOPRIM
     Indication: INFECTION PROPHYLAXIS
     Dosage: 960 MILLIGRAM, QD (MON, WI, FRI)
     Route: 048
     Dates: start: 20181129
  10. ACICLOVIR [Concomitant]
     Active Substance: ACYCLOVIR
     Indication: HERPES ZOSTER
     Dosage: 400 MILLIGRAM, QD
     Route: 048
     Dates: start: 20181129
  11. CARFILZOMIB [Suspect]
     Active Substance: CARFILZOMIB
     Indication: PLASMA CELL MYELOMA
     Dosage: 62.4 MILLIGRAM, PER CHEMO REGIM
     Route: 042
     Dates: start: 20181129, end: 20200213
  12. METFORMIN [Concomitant]
     Active Substance: METFORMIN HYDROCHLORIDE
     Indication: TYPE 2 DIABETES MELLITUS
     Dosage: 50?100 MILLIGRAM BID
     Route: 048
     Dates: start: 20181208

REACTIONS (1)
  - Erosive duodenitis [Recovered/Resolved]

NARRATIVE: CASE EVENT DATE: 20210107
